FAERS Safety Report 8321922-5 (Version None)
Quarter: 2012Q2

REPORT INFORMATION
  Report Type: 
  Country: None (occurrence: None)
  Receive Date: 20120430
  Receipt Date: 20091125
  Transmission Date: 20120825
  Serious: No
  Sender: FDA-Public Use
  Company Number: US-TEVA-2009029284

PATIENT
  Sex: Male
  Weight: 102.6 kg

DRUGS (2)
  1. NUVIGIL [Suspect]
     Indication: NARCOLEPSY
     Dosage: 150 MICROGRAM;
     Route: 048
  2. XYREM [Concomitant]

REACTIONS (1)
  - DRUG INEFFECTIVE [None]
